FAERS Safety Report 6631200-8 (Version None)
Quarter: 2010Q1

REPORT INFORMATION
  Report Type: 
  Country: None (occurrence: None)
  Receive Date: 20100309
  Receipt Date: 20100226
  Transmission Date: 20100710
  Serious: Yes (Hospitalization)
  Sender: FDA-Public Use
  Company Number: DSM-2010-00289

PATIENT
  Age: 85 Year
  Sex: Female

DRUGS (6)
  1. OLMESARTAN MEDOXOMIL [Suspect]
     Indication: HYPERTENSION
     Dosage: 40 MG (40 MG, 1 IN 1 D), ORAL
     Route: 048
     Dates: start: 20091115, end: 20091130
  2. AMERIDE (HYDROCHLOROTHIAZIDE, AMILORIDE HYDROCHLORIDE) (HYDROCHLOROTHI [Suspect]
     Indication: HYPERTENSION
     Dosage: 5/50 MG, ORAL
     Route: 048
     Dates: start: 20080101, end: 20091130
  3. OMEPRAZOLE [Concomitant]
  4. ARTEDIL (MANIDIPINE HYDROCHLORIDE) (MANIDIPINE HYDROCHLORIDE) [Concomitant]
  5. NITROPLAST (GLYCERYL TRINITRATE) (GLYCERYL TRINITRATE) [Concomitant]
  6. ZARATOR (ATORVASTATIN) (ATORVASTATIN) [Concomitant]

REACTIONS (3)
  - ANGINA PECTORIS [None]
  - HYPERKALAEMIA [None]
  - RENAL FAILURE ACUTE [None]
